FAERS Safety Report 9828546 (Version 3)
Quarter: 2014Q1

REPORT INFORMATION
  Report Type: Spontaneous
  Country: US (occurrence: US)
  Receive Date: 20140117
  Receipt Date: 20140313
  Transmission Date: 20141002
  Serious: Yes (Hospitalization)
  Sender: FDA-Public Use
  Company Number: PHHY2014US002236

PATIENT
  Age: 70 Year
  Sex: Male

DRUGS (2)
  1. DILTIAZEM [Suspect]
     Indication: ATRIAL FIBRILLATION
     Dosage: 20 MG, (0.25 MG/KG)
     Route: 040
  2. DILTIAZEM [Suspect]
     Dosage: 10 MG/H, OT
     Route: 042

REACTIONS (14)
  - Acute hepatic failure [Recovered/Resolved]
  - Renal failure acute [Recovered/Resolved]
  - Lung infiltration [Recovered/Resolved]
  - Ascites [Recovered/Resolved]
  - Ischaemic hepatitis [Recovered/Resolved]
  - Hepatic cirrhosis [Recovered/Resolved]
  - Coagulopathy [Recovered/Resolved]
  - Hypotension [Recovered/Resolved]
  - Blood creatinine increased [Recovered/Resolved]
  - General physical health deterioration [Recovered/Resolved]
  - Pleural effusion [Recovered/Resolved]
  - Oedema peripheral [Recovered/Resolved]
  - Thrombocytopenia [Recovered/Resolved]
  - Prothrombin time prolonged [Recovered/Resolved]
